FAERS Safety Report 10380638 (Version 1)
Quarter: 2014Q1

REPORT INFORMATION
  Report Type: Spontaneous
  Country: US (occurrence: None)
  Receive Date: 20140306
  Receipt Date: 20140306
  Transmission Date: 20141002
  Serious: Yes (Other)
  Sender: FDA-Public Use
  Company Number: 163-21880-13094160

PATIENT
  Age: 58 Year
  Sex: Male
  Weight: 61.73 kg

DRUGS (5)
  1. REVLIMID (LENALIDOMIDE) (20 MILLIGRAM, CAPSULES) [Suspect]
     Indication: PLASMA CELL MYELOMA
     Dosage: 20 MG, 21 IN 21 D, PO
     Route: 048
     Dates: start: 20130815, end: 20130826
  2. MORPHINE SULPHATE [Concomitant]
  3. PERCOCET (OXYCOCET) [Concomitant]
  4. SENOKOT (SENNA FRUIT) [Concomitant]
  5. TUMS (CALCIUM CARBONATE) [Concomitant]

REACTIONS (10)
  - Dehydration [None]
  - Influenza like illness [None]
  - Stomatitis [None]
  - Rash macular [None]
  - Rash [None]
  - Somnolence [None]
  - Pruritus [None]
  - Nausea [None]
  - Pyrexia [None]
  - Decreased appetite [None]
